FAERS Safety Report 26061805 (Version 3)
Quarter: 2025Q4

REPORT INFORMATION
  Report Type: Report from Study
  Country: CA (occurrence: CA)
  Receive Date: 20251118
  Receipt Date: 20251216
  Transmission Date: 20260118
  Serious: Yes (Death, Other)
  Sender: ABBVIE
  Company Number: CA-ABBVIE-6553528

PATIENT
  Age: 73 Year
  Sex: Male

DRUGS (2)
  1. VENETOCLAX [Suspect]
     Active Substance: VENETOCLAX
     Indication: Acute myeloid leukaemia
     Dosage: FORM STRENGTH- 100 MG?FOR 28 DAYS
     Route: 048
     Dates: start: 20241210
  2. AZACITIDINE [Concomitant]
     Active Substance: AZACITIDINE
     Indication: Product used for unknown indication

REACTIONS (6)
  - Death [Fatal]
  - Dyspnoea [Unknown]
  - Cough [Unknown]
  - Loss of personal independence in daily activities [Unknown]
  - Bone marrow transplant [Unknown]
  - Solid organ transplant [Unknown]

NARRATIVE: CASE EVENT DATE: 20250301
